FAERS Safety Report 5313933-9 (Version None)
Quarter: 2007Q2

REPORT INFORMATION
  Report Type: 
  Country: None (occurrence: None)
  Receive Date: 20070501
  Receipt Date: 20070419
  Transmission Date: 20071010
  Serious: Yes (Other)
  Sender: FDA-Public Use
  Company Number: HQWYE812024APR07

PATIENT
  Sex: Male
  Weight: 22 kg

DRUGS (3)
  1. BENEFIX [Suspect]
     Indication: FACTOR IX DEFICIENCY
     Dosage: 1500-3440 UNITS; TOTAL CUMULATIVE DOSE 50,310 UNITS
     Route: 042
     Dates: start: 19981121, end: 19981203
  2. DECADRON [Concomitant]
     Indication: PROPHYLAXIS
     Dosage: 4 MG
     Route: 042
     Dates: start: 19981121, end: 19981203
  3. BENADRYL [Concomitant]
     Indication: PROPHYLAXIS
     Dosage: 50 MG
     Route: 042
     Dates: start: 19981121, end: 19981203

REACTIONS (1)
  - FACTOR IX INHIBITION [None]
